FAERS Safety Report 9216438 (Version 3)
Quarter: 2013Q2

REPORT INFORMATION
  Report Type: Report from Study
  Country: US (occurrence: US)
  Receive Date: 20130408
  Receipt Date: 20130503
  Transmission Date: 20140414
  Serious: No
  Sender: FDA-Public Use
  Company Number: US-VERTEX PHARMACEUTICALS INC.-2013-004488

PATIENT
  Age: 54 Year
  Sex: Male
  Weight: 107 kg

DRUGS (4)
  1. VX-950 (TELAPREVIR) [Suspect]
     Indication: HEPATITIS C
     Dosage: 750 MG, TID
     Route: 048
     Dates: start: 20130314
  2. RIBAVIRIN [Suspect]
     Indication: HEPATITIS C
     Dosage: 600 MG, BID
     Route: 048
     Dates: start: 20130314
  3. PEGINTRON [Suspect]
     Indication: HEPATITIS C
     Dosage: 150 ?G, QW
     Route: 058
     Dates: start: 20130314
  4. TYLENOL [Concomitant]
     Indication: PAIN
     Dosage: UNK, PRN
     Route: 048

REACTIONS (3)
  - Influenza like illness [Not Recovered/Not Resolved]
  - Dysuria [Not Recovered/Not Resolved]
  - Diarrhoea [Not Recovered/Not Resolved]
